FAERS Safety Report 8918866 (Version 1)
Quarter: 2012Q4

REPORT INFORMATION
  Report Type: Spontaneous
  Country: US (occurrence: None)
  Receive Date: 20121115
  Receipt Date: 20121115
  Transmission Date: 20130627
  Serious: Yes (Hospitalization)
  Sender: FDA-Public Use
  Company Number: None

PATIENT
  Age: 58 Year
  Sex: Male
  Weight: 87.5 kg

DRUGS (1)
  1. GEMFIBROZIL [Suspect]
     Indication: HYPERLIPIDEMIA
     Route: 048
     Dates: start: 20120813, end: 20121027

REACTIONS (12)
  - Hepatic enzyme increased [None]
  - Yellow skin [None]
  - Dizziness [None]
  - Loss of consciousness [None]
  - Back injury [None]
  - Chromaturia [None]
  - Faeces pale [None]
  - Decreased appetite [None]
  - Weight decreased [None]
  - Nausea [None]
  - Vomiting [None]
  - Asthenia [None]
